FAERS Safety Report 8459411-X (Version None)
Quarter: 2012Q2

REPORT INFORMATION
  Report Type: 
  Country: None (occurrence: None)
  Receive Date: 20120622
  Receipt Date: 20120613
  Transmission Date: 20120825
  Serious: Yes (Hospitalization)
  Sender: FDA-Public Use
  Company Number: DE-JNJFOC-20120515715

PATIENT
  Age: 30 Year
  Sex: Male

DRUGS (8)
  1. AMISULPRID [Concomitant]
     Route: 048
     Dates: end: 20110901
  2. VIRAMUNE [Concomitant]
     Indication: HIV INFECTION
     Route: 065
  3. RISPERDAL CONSTA [Suspect]
     Indication: SCHIZOPHRENIA
     Dosage: 37.5 MG UP TO 50 MG
     Route: 030
     Dates: start: 20060101
  4. ABILIFY [Concomitant]
     Route: 048
     Dates: start: 20060101, end: 20120101
  5. QUETIAPINE [Concomitant]
     Route: 048
  6. CLOZAPINE [Concomitant]
     Indication: FATIGUE
     Route: 048
  7. VALPROIC ACID [Concomitant]
     Route: 065
  8. TRUVADA [Concomitant]
     Indication: HIV INFECTION
     Route: 065

REACTIONS (4)
  - TREATMENT NONCOMPLIANCE [None]
  - PANIC ATTACK [None]
  - HOSPITALISATION [None]
  - ABNORMAL BEHAVIOUR [None]
